FAERS Safety Report 10729080 (Version 4)
Quarter: 2015Q1

REPORT INFORMATION
  Report Type: Report from Study
  Country: JP (occurrence: JP)
  Receive Date: 20150122
  Receipt Date: 20150220
  Transmission Date: 20150721
  Serious: Yes (Hospitalization)
  Sender: FDA-Public Use
  Company Number: JP-JNJFOC-20150113193

PATIENT
  Age: 82 Year
  Sex: Male

DRUGS (12)
  1. OXYCODONE HYDROCHLORIDE HYDRATE [Concomitant]
     Active Substance: OXYCODONE HYDROCHLORIDE
     Indication: CANCER PAIN
     Dosage: 2.5 MG 4 TIMES PER DAY
     Route: 048
     Dates: start: 20141217, end: 20141230
  2. LAXOBERON [Concomitant]
     Active Substance: SODIUM PICOSULFATE
     Indication: SUBILEUS
     Route: 048
     Dates: start: 20150107
  3. PANTOSIN [Concomitant]
     Active Substance: PANTETHINE
     Indication: CONSTIPATION
     Route: 048
     Dates: start: 20150109, end: 20150112
  4. MAGMITT [Concomitant]
     Active Substance: MAGNESIUM OXIDE
     Indication: SUBILEUS
     Route: 048
     Dates: start: 20141224
  5. LAXOBERON [Concomitant]
     Active Substance: SODIUM PICOSULFATE
     Indication: CONSTIPATION
     Route: 048
     Dates: start: 20150107
  6. TAPENTA [Suspect]
     Active Substance: TAPENTADOL HYDROCHLORIDE
     Indication: CANCER PAIN
     Dosage: 25 MG TWICE PER DAY
     Route: 048
     Dates: start: 20141217, end: 20141223
  7. TAPENTA [Suspect]
     Active Substance: TAPENTADOL HYDROCHLORIDE
     Indication: CANCER PAIN
     Dosage: 50 MG TWICE PER DAY
     Route: 048
     Dates: start: 20141224, end: 20150107
  8. GLYCERINE [Concomitant]
     Active Substance: GLYCERIN
     Indication: SUBILEUS
     Route: 054
     Dates: start: 20150107
  9. PANTOSIN [Concomitant]
     Active Substance: PANTETHINE
     Indication: SUBILEUS
     Route: 048
     Dates: start: 20150109, end: 20150112
  10. MAGMITT [Concomitant]
     Active Substance: MAGNESIUM OXIDE
     Indication: CONSTIPATION
     Route: 048
     Dates: start: 20141224
  11. FENTOS TAPE [Concomitant]
     Active Substance: FENTANYL
     Indication: CANCER PAIN
     Route: 062
     Dates: start: 20150107
  12. GLYCERINE [Concomitant]
     Active Substance: GLYCERIN
     Indication: CONSTIPATION
     Route: 054
     Dates: start: 20150107

REACTIONS (3)
  - Subileus [Recovered/Resolved]
  - Constipation [Recovered/Resolved]
  - Nausea [Recovered/Resolved]

NARRATIVE: CASE EVENT DATE: 20141224
